FAERS Safety Report 18241595 (Version 1)
Quarter: 2020Q3

REPORT INFORMATION
  Report Type: Spontaneous
  Country: FR (occurrence: FR)
  Receive Date: 20200908
  Receipt Date: 20200908
  Transmission Date: 20201103
  Serious: Yes (Other)
  Sender: FDA-Public Use
  Company Number: NVSC2020FR242198

PATIENT
  Age: 71 Year
  Sex: Female
  Weight: 70 kg

DRUGS (2)
  1. ALPELISIB [Suspect]
     Active Substance: ALPELISIB
     Indication: BREAST CANCER
     Dosage: 300 MG, QD
     Route: 048
     Dates: start: 20200703, end: 20200721
  2. FASLODEX [Suspect]
     Active Substance: FULVESTRANT
     Indication: BREAST CANCER
     Dosage: 500 MG, TOTAL
     Route: 041
     Dates: start: 20200703

REACTIONS (2)
  - Rash [Recovered/Resolved]
  - Conjunctivitis [Not Recovered/Not Resolved]

NARRATIVE: CASE EVENT DATE: 20200715
